FAERS Safety Report 19130247 (Version 1)
Quarter: 2021Q2

REPORT INFORMATION
  Report Type: Spontaneous
  Country: IN (occurrence: IN)
  Receive Date: 20210414
  Receipt Date: 20210414
  Transmission Date: 20210717
  Serious: Yes (Other)
  Sender: FDA-Public Use
  Company Number: IN-HORMOSAN PHARMA GMBH-2021-04592

PATIENT
  Sex: Female

DRUGS (4)
  1. EPILIVE FILM C.TABS 500 MG [Suspect]
     Active Substance: LEVETIRACETAM
     Dosage: UNK, DOSE WAS INCREASED
     Route: 065
  2. EPILIVE FILM C.TABS 500 MG [Suspect]
     Active Substance: LEVETIRACETAM
     Indication: EPILEPSY
     Dosage: UNK
     Route: 065
  3. EPILIVE FILM C.TABS 500 MG [Suspect]
     Active Substance: LEVETIRACETAM
     Dosage: UNK
     Route: 065
  4. EPILIVE FILM C.TABS 500 MG [Suspect]
     Active Substance: LEVETIRACETAM
     Dosage: UNK, DOSE WAS INCREASED
     Route: 065

REACTIONS (3)
  - Irritability [Unknown]
  - Disease recurrence [Unknown]
  - Epilepsy [Unknown]
